FAERS Safety Report 23020441 (Version 1)
Quarter: 2023Q4

REPORT INFORMATION
  Report Type: Other
  Country: None (occurrence: US)
  Receive Date: 20231003
  Receipt Date: 20231003
  Transmission Date: 20240110
  Serious: Yes (Hospitalization, Other)
  Sender: FDA-Public Use
  Company Number: US-Marksans Pharma Limited-2146580

PATIENT
  Age: 37 Year
  Sex: Female

DRUGS (1)
  1. GABAPENTIN [Suspect]
     Active Substance: GABAPENTIN
     Indication: Fibromyalgia
     Route: 065

REACTIONS (4)
  - Off label use [Unknown]
  - Eczema [Unknown]
  - Stevens-Johnson syndrome [Recovering/Resolving]
  - Condition aggravated [Recovered/Resolved]
